FAERS Safety Report 8139808-8 (Version None)
Quarter: 2012Q1

REPORT INFORMATION
  Report Type: 
  Country: None (occurrence: None)
  Receive Date: 20120215
  Receipt Date: 20120209
  Transmission Date: 20120608
  Serious: Yes (Other)
  Sender: FDA-Public Use
  Company Number: US-GILEAD-2011-0042333

PATIENT
  Age: 34 Year
  Sex: Female

DRUGS (2)
  1. KALETRA [Concomitant]
     Indication: HIV INFECTION
     Dates: start: 20091210, end: 20100304
  2. TRUVADA [Suspect]
     Route: 048
     Dates: start: 20091210, end: 20100304

REACTIONS (4)
  - HELLP SYNDROME [None]
  - STILLBIRTH [None]
  - PRE-ECLAMPSIA [None]
  - HYPERTENSION [None]
